FAERS Safety Report 9535913 (Version 2)
Quarter: 2013Q3

REPORT INFORMATION
  Report Type: Spontaneous
  Country: US (occurrence: None)
  Receive Date: 20130507
  Receipt Date: 20130724
  Transmission Date: 20140515
  Serious: Yes (Hospitalization)
  Sender: FDA-Public Use
  Company Number: PHEH2013US002084

PATIENT
  Age: 3 Year
  Sex: Female

DRUGS (7)
  1. AFINITOR (RAD) [Suspect]
     Indication: TUBEROUS SCLEROSIS
     Route: 048
     Dates: start: 20120123
  2. VIGABATRIN (VIGABATRIN) [Concomitant]
  3. KLONOPIN (CLONAZEPAM) (TABLETS) [Concomitant]
  4. SABRIL (VIGABATRIN) [Concomitant]
  5. TRAZODONE [Concomitant]
  6. DIASTAT /01384601/ (ATROPA BELLADONNA TINCTURE, CHLOROFORM AND MORPHINE TINCTURE, KAOLIN, PECTIN, PHTHALYLSULFATHIAZOLE, STREPTOMYCIN) [Concomitant]
  7. CLONIDINE (CLONIDINE) [Concomitant]

REACTIONS (5)
  - Pneumonia [None]
  - Influenza [None]
  - Pyrexia [None]
  - Cough [None]
  - Croup infectious [None]
